FAERS Safety Report 13066767 (Version 1)
Quarter: 2016Q4

REPORT INFORMATION
  Report Type: Spontaneous
  Country: JP (occurrence: JP)
  Receive Date: 20161227
  Receipt Date: 20161227
  Transmission Date: 20170207
  Serious: Yes (Other)
  Sender: FDA-Public Use
  Company Number: JP-PFIZER INC-2016598247

PATIENT
  Age: 89 Year
  Sex: Female

DRUGS (1)
  1. LYRICA [Suspect]
     Active Substance: PREGABALIN
     Dosage: 1 DF, 1X/DAY
     Route: 048

REACTIONS (2)
  - Chest discomfort [Unknown]
  - Oedema due to cardiac disease [Unknown]
